FAERS Safety Report 20980527 (Version 1)
Quarter: 2022Q2

REPORT INFORMATION
  Report Type: Spontaneous
  Country: MX (occurrence: None)
  Receive Date: 20220620
  Receipt Date: 20220620
  Transmission Date: 20220721
  Serious: No
  Sender: FDA-Public Use
  Company Number: MX-ROCHE-3119877

PATIENT

DRUGS (1)
  1. ACTEMRA [Suspect]
     Active Substance: TOCILIZUMAB
     Indication: COVID-19
     Dosage: 400 MG/ 20 ML (20 MG/ML)?DOSE AND FREQUENCY WERE NOT REPORTED
     Route: 042

REACTIONS (3)
  - Suspected counterfeit product [Unknown]
  - Intercepted medication error [Unknown]
  - No adverse event [Unknown]
